FAERS Safety Report 20896108 (Version 2)
Quarter: 2022Q2

REPORT INFORMATION
  Report Type: Spontaneous
  Country: CA (occurrence: CA)
  Receive Date: 20220531
  Receipt Date: 20220627
  Transmission Date: 20220721
  Serious: No
  Sender: FDA-Public Use
  Company Number: CA-PFIZER INC-202200695857

PATIENT
  Age: 69 Year
  Sex: Female

DRUGS (9)
  1. SOMAVERT [Suspect]
     Active Substance: PEGVISOMANT
     Indication: Acromegaly
     Dosage: 10 MG, 1X/DAY
     Route: 058
     Dates: start: 20140827
  2. LANREOTIDE ACETATE [Concomitant]
     Active Substance: LANREOTIDE ACETATE
     Dosage: 120 MG, EVERY 4 WEEKS
  3. CYTOMEL [Concomitant]
     Active Substance: LIOTHYRONINE SODIUM
     Dosage: 5 UG, DAILY
     Route: 048
  4. IRBESARTAN [Concomitant]
     Active Substance: IRBESARTAN
     Dosage: 150 MG, DAILY
     Route: 048
  5. SYNTHROID [Concomitant]
     Active Substance: LEVOTHYROXINE SODIUM
     Dosage: 0.150 MG, 3DAYS/WEEK
     Route: 048
  6. SYNTHROID [Concomitant]
     Active Substance: LEVOTHYROXINE SODIUM
     Dosage: 0.175 MG, 4DAYS/WEEK
     Route: 048
  7. CALCIUM [Concomitant]
     Active Substance: CALCIUM
     Dosage: 500 MG, DAILY
     Route: 048
  8. VITAMIN B12 [Concomitant]
     Active Substance: CYANOCOBALAMIN
     Dosage: UNK
  9. TOPICORT [Concomitant]
     Active Substance: DESOXIMETASONE
     Indication: Eczema
     Dosage: PRN TO INSIDE OF EARS

REACTIONS (1)
  - Product container issue [Unknown]
